FAERS Safety Report 9849791 (Version 1)
Quarter: 2014Q1

REPORT INFORMATION
  Report Type: Spontaneous
  Country: US (occurrence: None)
  Receive Date: 20140124
  Receipt Date: 20140124
  Transmission Date: 20141002
  Serious: Yes (Other)
  Sender: FDA-Public Use
  Company Number: None

PATIENT
  Age: 39 Year
  Sex: Female
  Weight: 67.59 kg

DRUGS (1)
  1. MIRVASO [Suspect]
     Indication: ROSACEA

REACTIONS (1)
  - Skin discolouration [None]
